FAERS Safety Report 25803924 (Version 1)
Quarter: 2025Q3

REPORT INFORMATION
  Report Type: Spontaneous
  Country: EU (occurrence: EU)
  Receive Date: 20250915
  Receipt Date: 20250915
  Transmission Date: 20251020
  Serious: Yes (Other)
  Sender: PFIZER
  Company Number: EU-PFIZER INC-PV202500109451

PATIENT
  Age: 27 Year
  Sex: Male

DRUGS (3)
  1. CYTARABINE [Suspect]
     Active Substance: CYTARABINE
     Indication: Burkitt^s lymphoma
     Route: 037
     Dates: start: 2023
  2. METHOTREXATE [Suspect]
     Active Substance: METHOTREXATE
     Indication: Burkitt^s lymphoma
     Route: 037
     Dates: start: 2023
  3. DEXAMETHASONE [Suspect]
     Active Substance: DEXAMETHASONE
     Indication: Burkitt^s lymphoma
     Route: 037
     Dates: start: 2023

REACTIONS (2)
  - Renal disorder [Unknown]
  - Off label use [Unknown]

NARRATIVE: CASE EVENT DATE: 20230101
